FAERS Safety Report 9451778 (Version 2)
Quarter: 2013Q4

REPORT INFORMATION
  Report Type: Spontaneous
  Country: US (occurrence: US)
  Receive Date: 20130812
  Receipt Date: 20131017
  Transmission Date: 20140711
  Serious: Yes (Other)
  Sender: FDA-Public Use
  Company Number: US-009507513-1308USA004007

PATIENT
  Sex: Male
  Weight: 91.61 kg

DRUGS (5)
  1. DULERA [Suspect]
     Dosage: 200 MICROGRAM, BID
     Route: 055
     Dates: start: 20130412, end: 20130510
  2. XARELTO [Concomitant]
     Dosage: UNK
  3. ALBUTEROL SULFATE [Concomitant]
     Dosage: 2  INH, PRN
  4. SINGULAIR [Concomitant]
     Dosage: UNK MG, UNK
     Route: 048
  5. TESTOSTERONE [Concomitant]

REACTIONS (1)
  - Adrenal insufficiency [Recovered/Resolved]
